FAERS Safety Report 23957268 (Version 3)
Quarter: 2024Q3

REPORT INFORMATION
  Report Type: Spontaneous
  Country: US (occurrence: US)
  Receive Date: 20240610
  Receipt Date: 20240712
  Transmission Date: 20241016
  Serious: No
  Sender: MYLAN
  Company Number: US-MYLANLABS-2024M1046970

PATIENT
  Age: 63 Year
  Sex: Male

DRUGS (4)
  1. RYZUMVI [Suspect]
     Active Substance: PHENTOLAMINE MESYLATE
     Indication: Mydriasis
     Dosage: UNK
     Route: 065
  2. RYZUMVI [Suspect]
     Active Substance: PHENTOLAMINE MESYLATE
     Dosage: 1 GTT DROPS (IN EACH EYE AS DIRECTED)
     Route: 047
     Dates: start: 20240523
  3. VITAMIN D [Concomitant]
     Active Substance: VITAMIN D NOS
     Dosage: UNK
     Route: 065
  4. FISH OIL [Concomitant]
     Active Substance: FISH OIL
     Dosage: UNK
     Route: 065

REACTIONS (4)
  - Xanthopsia [Unknown]
  - Photophobia [Unknown]
  - Drug ineffective [Unknown]
  - Vision blurred [Unknown]
